FAERS Safety Report 9684522 (Version 3)
Quarter: 2015Q4

REPORT INFORMATION
  Report Type: Spontaneous
  Country: AU (occurrence: AU)
  Receive Date: 20131112
  Receipt Date: 20151023
  Transmission Date: 20160305
  Serious: No
  Sender: FDA-Public Use
  Company Number: AU-ABBVIE-13P-008-1168289-00

PATIENT
  Sex: Male
  Weight: 77.4 kg

DRUGS (1)
  1. CREON [Suspect]
     Active Substance: PANCRELIPASE AMYLASE\PANCRELIPASE LIPASE\PANCRELIPASE PROTEASE
     Indication: PANCREATICODUODENECTOMY
     Dosage: DOSE: 40,000 UNITS
     Route: 065

REACTIONS (3)
  - Wrong technique in product usage process [Unknown]
  - Flatulence [Unknown]
  - Diarrhoea [Unknown]
